FAERS Safety Report 5382608-2 (Version None)
Quarter: 2007Q3

REPORT INFORMATION
  Report Type: 
  Country: None (occurrence: None)
  Receive Date: 20070710
  Receipt Date: 20070629
  Transmission Date: 20080115
  Serious: Yes (Other)
  Sender: FDA-Public Use
  Company Number: PHFR2007GB02036

PATIENT
  Age: 66 Year
  Sex: Female

DRUGS (1)
  1. ESTRADERM [Suspect]
     Dosage: UNK, UNK
     Route: 062

REACTIONS (3)
  - ANGINA PECTORIS [None]
  - FEELING ABNORMAL [None]
  - FLUSHING [None]
